FAERS Safety Report 13926786 (Version 2)
Quarter: 2017Q4

REPORT INFORMATION
  Report Type: Spontaneous
  Country: US (occurrence: US)
  Receive Date: 20170901
  Receipt Date: 20171113
  Transmission Date: 20180320
  Serious: Yes (Other)
  Sender: FDA-Public Use
  Company Number: US-PFIZER INC-2017371297

PATIENT
  Age: 23 Month
  Sex: Male
  Weight: 14.97 kg

DRUGS (3)
  1. BENEFIX [Suspect]
     Active Substance: COAGULATION FACTOR IX RECOMBINANT HUMAN\ISOPROPYL ALCOHOL
     Indication: FACTOR IX DEFICIENCY
     Dosage: 1000 IU, UNK
     Route: 042
     Dates: start: 20160224
  2. ALBUTEROL. [Concomitant]
     Active Substance: ALBUTEROL
     Indication: NASOPHARYNGITIS
     Dosage: GIVEN IN A NEBULIZER FOR BREATHING TREATMENTS
     Dates: start: 201602
  3. PULMICORT TURBUHALER [Concomitant]
     Active Substance: BUDESONIDE
     Indication: NASOPHARYNGITIS
     Dosage: GIVEN IN A NEBULIZER FOR BREATHING TREATMENTS
     Dates: start: 201602

REACTIONS (3)
  - Cough [Recovered/Resolved]
  - Haemorrhage [Recovering/Resolving]
  - Reaction to excipient [Unknown]

NARRATIVE: CASE EVENT DATE: 20160224
